FAERS Safety Report 12210714 (Version 1)
Quarter: 2016Q1

REPORT INFORMATION
  Report Type: Spontaneous
  Country: US (occurrence: US)
  Receive Date: 20160325
  Receipt Date: 20160325
  Transmission Date: 20160526
  Serious: Yes (Hospitalization, Other)
  Sender: FDA-Public Use
  Company Number: US-GLENMARK PHARMACEUTICALS INC, USA.-2016GMK022391

PATIENT
  Age: 19 Month
  Sex: Male
  Weight: 11.4 kg

DRUGS (1)
  1. LAMOTRIGINE. [Suspect]
     Active Substance: LAMOTRIGINE
     Indication: PRODUCT USED FOR UNKNOWN INDICATION
     Dosage: 400 MG, UNK

REACTIONS (9)
  - Crying [Recovering/Resolving]
  - Toxicity to various agents [Unknown]
  - Hypotonia [Recovering/Resolving]
  - Accidental overdose [Unknown]
  - Vomiting [Unknown]
  - Dysarthria [Recovering/Resolving]
  - Confusional state [Recovering/Resolving]
  - Agitation [Recovering/Resolving]
  - Neurotoxicity [Unknown]
